FAERS Safety Report 6257404-4 (Version None)
Quarter: 2009Q3

REPORT INFORMATION
  Report Type: 
  Country: None (occurrence: None)
  Receive Date: 20090706
  Receipt Date: 20090625
  Transmission Date: 20100115
  Serious: Yes (Hospitalization, Disabling, Other)
  Sender: FDA-Public Use
  Company Number: US-MERCK-0811USA02522

PATIENT
  Age: 58 Year
  Sex: Female
  Weight: 66 kg

DRUGS (11)
  1. FOSAMAX [Suspect]
     Indication: OSTEOPENIA
     Route: 048
     Dates: start: 19980301
  2. FOSAMAX [Suspect]
     Route: 048
     Dates: start: 20020201, end: 20071101
  3. FOSAMAX [Suspect]
     Route: 048
  4. FOSAMAX [Suspect]
     Indication: OSTEOPOROSIS
     Route: 048
     Dates: start: 19980301
  5. FOSAMAX [Suspect]
     Route: 048
     Dates: start: 20020201, end: 20071101
  6. FOSAMAX [Suspect]
     Route: 048
  7. CALCIUM (UNSPECIFIED) [Concomitant]
     Route: 065
  8. PRAVACHOL [Concomitant]
     Route: 065
  9. CLARITIN [Concomitant]
     Route: 065
  10. TUMS [Concomitant]
     Route: 065
  11. VITAMIN D (UNSPECIFIED) [Concomitant]
     Route: 065

REACTIONS (21)
  - ARTHRITIS [None]
  - ASTHMA [None]
  - BACK PAIN [None]
  - BONE DISORDER [None]
  - CHRONIC OBSTRUCTIVE PULMONARY DISEASE [None]
  - CONSTIPATION [None]
  - DEPRESSION [None]
  - DEVICE MALFUNCTION [None]
  - DRUG HYPERSENSITIVITY [None]
  - FALL [None]
  - FEMUR FRACTURE [None]
  - GALLBLADDER DISORDER [None]
  - HIP ARTHROPLASTY [None]
  - HYPERTENSION [None]
  - LOW TURNOVER OSTEOPATHY [None]
  - OSTEOARTHRITIS [None]
  - OVERDOSE [None]
  - PLEURISY [None]
  - PNEUMONIA [None]
  - STRESS FRACTURE [None]
  - VULVOVAGINAL DRYNESS [None]
